FAERS Safety Report 5848172-6 (Version None)
Quarter: 2008Q3

REPORT INFORMATION
  Report Type: 
  Country: None (occurrence: None)
  Receive Date: 20080818
  Receipt Date: 20080808
  Transmission Date: 20090109
  Serious: Yes (Other)
  Sender: FDA-Public Use
  Company Number: A0742955A

PATIENT
  Sex: Male

DRUGS (25)
  1. AVANDIA [Suspect]
     Indication: DRUG USE FOR UNKNOWN INDICATION
     Dosage: 4MG UNKNOWN
     Route: 048
     Dates: start: 20030424
  2. LOTREL [Concomitant]
  3. ENALAPRIL [Concomitant]
  4. HYZAAR [Concomitant]
  5. ATENOLOL [Concomitant]
  6. DOLOGESIC [Concomitant]
  7. TRAMADOL HCL [Concomitant]
  8. CRESTOR [Concomitant]
  9. METFORMIN HCL [Concomitant]
  10. PROTONIX [Concomitant]
  11. CLARITHROMYCIN [Concomitant]
  12. CYCLOBENZAPRINE HCL [Concomitant]
  13. BUTALBITAL [Concomitant]
  14. PREVACID [Concomitant]
  15. PLAVIX [Concomitant]
  16. ISOSORBIDE [Concomitant]
  17. CARAFATE [Concomitant]
  18. METOPROLOL TARTRATE [Concomitant]
  19. AVALIDE [Concomitant]
  20. LIPITOR [Concomitant]
  21. LEVAQUIN [Concomitant]
  22. ZOLPIDEM [Concomitant]
  23. OXYCODONE HCL [Concomitant]
  24. TUSNEL [Concomitant]
  25. BIAXIN [Concomitant]

REACTIONS (1)
  - MYOCARDIAL INFARCTION [None]
